FAERS Safety Report 4264979-3 (Version None)
Quarter: 2004Q1

REPORT INFORMATION
  Report Type: 
  Country: None (occurrence: None)
  Receive Date: 20040106
  Receipt Date: 20030520
  Transmission Date: 20041129
  Serious: Yes (Death, Life-Threatening, Hospitalization)
  Sender: FDA-Public Use
  Company Number: WAES 0305USA02332

PATIENT
  Age: 63 Year
  Sex: Male

DRUGS (16)
  1. GASTROM [Concomitant]
     Route: 048
     Dates: start: 20020401
  2. GASTROM [Concomitant]
     Route: 048
     Dates: start: 20020724, end: 20030518
  3. PEPCID [Suspect]
     Route: 048
     Dates: start: 20030212, end: 20030518
  4. PEPCID [Concomitant]
     Route: 048
     Dates: start: 20010725, end: 20030211
  5. GASMOTIN [Concomitant]
  6. PREDONINE [Concomitant]
     Indication: GASTRIC POLYPS
     Route: 048
     Dates: start: 20010401
  7. PREDONINE [Concomitant]
     Route: 048
     Dates: start: 20010411, end: 20010424
  8. PREDONINE [Concomitant]
     Route: 048
     Dates: start: 20010425, end: 20010514
  9. PREDONINE [Concomitant]
     Route: 048
     Dates: start: 20010515, end: 20010529
  10. PREDONINE [Concomitant]
     Route: 048
     Dates: start: 20010530, end: 20010612
  11. PREDONINE [Concomitant]
     Route: 048
     Dates: start: 20010613, end: 20010624
  12. PREDONINE [Concomitant]
     Route: 048
     Dates: start: 20010625, end: 20010710
  13. PREDONINE [Concomitant]
     Route: 048
     Dates: start: 20010711, end: 20010725
  14. PREDONINE [Concomitant]
     Route: 048
     Dates: start: 20010726, end: 20011114
  15. PREDONINE [Concomitant]
     Route: 048
     Dates: start: 20011115, end: 20030212
  16. PREDONINE [Concomitant]
     Route: 048
     Dates: start: 20030213

REACTIONS (8)
  - LEUKOPENIA [None]
  - MYELODYSPLASTIC SYNDROME [None]
  - NASOPHARYNGITIS [None]
  - PANCYTOPENIA [None]
  - PNEUMONIA [None]
  - PULMONARY HAEMORRHAGE [None]
  - RESPIRATORY ARREST [None]
  - RESPIRATORY TRACT INFECTION VIRAL [None]
